FAERS Safety Report 20784278 (Version 1)
Quarter: 2022Q2

REPORT INFORMATION
  Report Type: Spontaneous
  Country: US (occurrence: US)
  Receive Date: 20220504
  Receipt Date: 20220504
  Transmission Date: 20220720
  Serious: No
  Sender: FDA-Public Use
  Company Number: US-MYLANLABS-2022M1029824

PATIENT
  Sex: Male
  Weight: 127.01 kg

DRUGS (1)
  1. MUSE [Suspect]
     Active Substance: ALPROSTADIL
     Indication: Erectile dysfunction
     Dosage: UNK
     Route: 066

REACTIONS (3)
  - Application site pain [Recovering/Resolving]
  - Sensory loss [Recovering/Resolving]
  - Pain [Recovering/Resolving]
